FAERS Safety Report 8800377 (Version 1)
Quarter: 2012Q4

REPORT INFORMATION
  Report Type: 
  Country: BR (occurrence: BR)
  Receive Date: 20120921
  Receipt Date: 20120921
  Transmission Date: 20130627
  Serious: Yes (Death)
  Sender: FDA-Public Use
  Company Number: PHHY2012BR081248

PATIENT
  Age: 99 Year
  Sex: Female

DRUGS (1)
  1. FORASEQ [Suspect]
     Indication: FATIGUE
     Dosage: UNK UKN, BID

REACTIONS (2)
  - Multi-organ failure [Fatal]
  - Drug ineffective [Unknown]
